FAERS Safety Report 23245376 (Version 3)
Quarter: 2024Q1

REPORT INFORMATION
  Report Type: Spontaneous
  Country: US (occurrence: None)
  Receive Date: 20231130
  Receipt Date: 20240108
  Transmission Date: 20240409
  Serious: No
  Sender: FDA-Public Use
  Company Number: 2023A260455

PATIENT
  Age: 55 Year
  Sex: Male

DRUGS (1)
  1. BYDUREON BCISE [Suspect]
     Active Substance: EXENATIDE
     Indication: Diabetes mellitus

REACTIONS (4)
  - Haemorrhage [Unknown]
  - Wrong technique in device usage process [Unknown]
  - Needle issue [Unknown]
  - Drug dose omission by device [Unknown]
